FAERS Safety Report 21668979 (Version 1)
Quarter: 2022Q4

REPORT INFORMATION
  Report Type: Spontaneous
  Country: US (occurrence: None)
  Receive Date: 20221201
  Receipt Date: 20221201
  Transmission Date: 20230113
  Serious: No
  Sender: FDA-Public Use
  Company Number: None

PATIENT
  Sex: Male

DRUGS (1)
  1. VOTRIENT [Suspect]
     Active Substance: PAZOPANIB HYDROCHLORIDE
     Indication: Soft tissue sarcoma
     Dosage: FREQUENCY : DAILY;?
     Route: 048
     Dates: start: 20221005

REACTIONS (7)
  - Vomiting [None]
  - Nausea [None]
  - Shock [None]
  - Withdrawal syndrome [None]
  - Gait inability [None]
  - Cold sweat [None]
  - Intentional dose omission [None]
